FAERS Safety Report 10060885 (Version 1)
Quarter: 2014Q2

REPORT INFORMATION
  Report Type: Report from Study
  Country: US (occurrence: US)
  Receive Date: 20140404
  Receipt Date: 20140404
  Transmission Date: 20141212
  Serious: Yes (Other)
  Sender: FDA-Public Use
  Company Number: US-ASTRAZENECA-2014SE22837

PATIENT
  Age: 67 Year
  Sex: Male
  Weight: 116.1 kg

DRUGS (13)
  1. BRILINTA [Suspect]
     Indication: STENT PLACEMENT
     Route: 048
     Dates: start: 201312, end: 20140326
  2. LISINOPRIL [Suspect]
     Indication: BLOOD PRESSURE ABNORMAL
     Route: 048
     Dates: start: 2009
  3. LISINOPRIL [Suspect]
     Indication: BLOOD PRESSURE ABNORMAL
     Route: 048
  4. CRESTOR [Suspect]
     Indication: BLOOD CHOLESTEROL INCREASED
     Route: 048
     Dates: start: 201312
  5. HUMALOG INSULIN [Concomitant]
     Indication: DIABETES MELLITUS
     Dosage: 10 UNITS AT BREAKFAST, 12 UNITS AT LUNCH, AND 16 UNITS AT DINNER WITH A SLIDING SCALE
     Dates: start: 2006
  6. NOVOLIN N [Concomitant]
     Indication: DIABETES MELLITUS
     Dates: start: 2006
  7. METFORMIN [Concomitant]
     Indication: DIABETES MELLITUS
     Route: 048
     Dates: start: 1997
  8. FOLIC ACID [Concomitant]
     Indication: CARDIAC DISORDER
     Route: 048
     Dates: start: 2004
  9. FOLIC ACID [Concomitant]
     Indication: DIABETES MELLITUS
     Route: 048
     Dates: start: 2004
  10. VITAMIN D3 [Concomitant]
     Indication: DIABETES MELLITUS
     Route: 048
     Dates: start: 2013
  11. VITAMIN D3 [Concomitant]
     Indication: CARDIAC DISORDER
     Route: 048
     Dates: start: 2013
  12. METOPROLOL TARTRATE [Concomitant]
     Indication: CARDIAC DISORDER
     Route: 048
     Dates: start: 2004
  13. GENERIC RANITIDINE [Concomitant]
     Indication: DYSPEPSIA
     Route: 048
     Dates: start: 201312

REACTIONS (2)
  - Loss of consciousness [Unknown]
  - Dyspnoea [Recovered/Resolved]
